FAERS Safety Report 10519544 (Version 4)
Quarter: 2014Q4

REPORT INFORMATION
  Report Type: Spontaneous
  Country: JP (occurrence: JP)
  Receive Date: 20141015
  Receipt Date: 20141201
  Transmission Date: 20150528
  Serious: Yes (Life-Threatening, Other)
  Sender: FDA-Public Use
  Company Number: JP-ASTELLAS-2014JP021005

PATIENT
  Age: 75 Year
  Sex: Female
  Weight: 42 kg

DRUGS (21)
  1. MUCODYNE [Concomitant]
     Active Substance: CARBOCYSTEINE
     Indication: MYCOBACTERIUM AVIUM COMPLEX INFECTION
     Route: 048
     Dates: start: 1998, end: 20140922
  2. CLARITH [Concomitant]
     Active Substance: CLARITHROMYCIN
     Dosage: 400-600 MG/DAY, 2-3 TIMES/DAY
     Route: 048
     Dates: start: 200007, end: 200408
  3. ITRIZOLE [Concomitant]
     Active Substance: ITRACONAZOLE
     Indication: ASPERGILLUS INFECTION
     Route: 065
     Dates: start: 20140802, end: 20140816
  4. CLARITH [Concomitant]
     Active Substance: CLARITHROMYCIN
     Indication: MYCOBACTERIUM AVIUM COMPLEX INFECTION
     Dosage: 400-600 MG/DAY, 2-3 TIMES/DAY
     Route: 048
     Dates: start: 1998
  5. SULPERAZONE [Concomitant]
     Active Substance: CEFOPERAZONE SODIUM\SULBACTAM SODIUM
     Indication: BILIARY TRACT INFECTION
     Route: 041
     Dates: start: 20140903, end: 20140904
  6. MEROPEN                            /01250501/ [Concomitant]
     Active Substance: MEROPENEM
     Indication: PYREXIA
     Dosage: 0.5 G, THRICE DAILY
     Route: 041
     Dates: start: 20140904, end: 20140913
  7. CRAVIT [Concomitant]
     Active Substance: LEVOFLOXACIN
     Indication: MYCOBACTERIUM AVIUM COMPLEX INFECTION
     Route: 048
     Dates: start: 200007
  8. CRAVIT [Concomitant]
     Active Substance: LEVOFLOXACIN
     Route: 048
     Dates: start: 200208, end: 200408
  9. ANHIBA [Concomitant]
     Active Substance: ACETAMINOPHEN
     Indication: PYREXIA
     Route: 065
     Dates: start: 20140904, end: 20140904
  10. CRAVIT [Concomitant]
     Active Substance: LEVOFLOXACIN
     Route: 048
     Dates: start: 200904, end: 20140922
  11. FAMOTIDINE. [Concomitant]
     Active Substance: FAMOTIDINE
     Indication: GASTRIC ULCER
     Route: 041
     Dates: start: 20140903, end: 20140906
  12. FUNGUARD [Suspect]
     Active Substance: MICAFUNGIN SODIUM
     Indication: BRONCHOPULMONARY ASPERGILLOSIS
     Route: 041
     Dates: start: 20140819, end: 20140901
  13. RIFADIN [Concomitant]
     Active Substance: RIFAMPIN
     Route: 048
     Dates: start: 200208, end: 200408
  14. CLARITH [Concomitant]
     Active Substance: CLARITHROMYCIN
     Dosage: 400-600 MG/DAY, 2-3 TIMES/DAY
     Route: 048
     Dates: start: 200904, end: 20140922
  15. FUNGUARD [Suspect]
     Active Substance: MICAFUNGIN SODIUM
     Route: 041
     Dates: start: 20140902, end: 20140912
  16. MEROPEN                            /01250501/ [Concomitant]
     Active Substance: MEROPENEM
     Indication: BILIARY TRACT INFECTION
  17. HABEKACIN                          /01069401/ [Concomitant]
     Indication: STAPHYLOCOCCAL INFECTION
     Route: 041
     Dates: start: 20140904, end: 20140913
  18. BAKUMONDOTO [Concomitant]
     Active Substance: HERBALS
     Indication: MYCOBACTERIUM AVIUM COMPLEX INFECTION
     Route: 048
     Dates: start: 20140705, end: 20140922
  19. RIFADIN [Concomitant]
     Active Substance: RIFAMPIN
     Indication: MYCOBACTERIUM AVIUM COMPLEX INFECTION
     Route: 048
     Dates: start: 1998
  20. RIFADIN [Concomitant]
     Active Substance: RIFAMPIN
     Route: 048
     Dates: start: 200904, end: 20140922
  21. CARBAZOCHROME [Concomitant]
     Active Substance: CARBAZOCHROME
     Indication: HAEMOPTYSIS
     Route: 041
     Dates: start: 20140819, end: 20140917

REACTIONS (2)
  - Pyrexia [Recovered/Resolved]
  - Haemolytic anaemia [Recovered/Resolved]

NARRATIVE: CASE EVENT DATE: 20140902
